FAERS Safety Report 13391057 (Version 3)
Quarter: 2017Q4

REPORT INFORMATION
  Report Type: Spontaneous
  Country: DE (occurrence: DE)
  Receive Date: 20170331
  Receipt Date: 20171103
  Transmission Date: 20180320
  Serious: Yes (Hospitalization, Other)
  Sender: FDA-Public Use
  Company Number: DE-GLAXOSMITHKLINE-DE2017GSK045095

PATIENT
  Age: 57 Year
  Sex: Male
  Weight: 116 kg

DRUGS (16)
  1. NUCALA [Suspect]
     Active Substance: MEPOLIZUMAB
     Indication: EOSINOPHILIC PNEUMONIA
     Dosage: 100 MG, CYC
     Route: 058
     Dates: start: 20160801, end: 20170201
  2. BRIMICA GENUAIR [Concomitant]
     Active Substance: ACLIDINIUM BROMIDE\FORMOTEROL FUMARATE
     Dosage: UNK
  3. ALLOPURINOL 100 [Concomitant]
     Active Substance: ALLOPURINOL
     Dosage: UNK
  4. VITAMIN B12 [Concomitant]
     Active Substance: CYANOCOBALAMIN
     Dosage: UNK
     Route: 058
  5. PANTOPRAZOLE SODIUM. [Concomitant]
     Active Substance: PANTOPRAZOLE SODIUM
     Dosage: 20 MG, 1D
  6. FOLSAN [Concomitant]
     Active Substance: FOLIC ACID
     Dosage: UNK
  7. ARCOXIA [Concomitant]
     Active Substance: ETORICOXIB
     Dosage: 60 MG, 1D
  8. CALCIUM 600 [Concomitant]
     Dosage: UNK
  9. IBUPROFEN. [Concomitant]
     Active Substance: IBUPROFEN
  10. PANTOPRAZOL [Concomitant]
     Active Substance: PANTOPRAZOLE SODIUM
     Indication: PROPHYLAXIS
     Dosage: UNK
     Route: 048
  11. NEXIUM [Concomitant]
     Active Substance: ESOMEPRAZOLE MAGNESIUM
     Dosage: 40 MG, 1D
  12. TORASEMID 1A PHARMA [Concomitant]
     Active Substance: TORSEMIDE
  13. DECORTIN H [Concomitant]
     Active Substance: PREDNISOLONE
     Indication: ASTHMA
     Dosage: UNK
     Route: 048
     Dates: start: 201608, end: 201702
  14. PREDNISOLON AL [Concomitant]
     Dosage: 15 MG, 1D
  15. NUCALA [Suspect]
     Active Substance: MEPOLIZUMAB
     Dosage: 100 MG, CYC
     Route: 058
     Dates: start: 201702
  16. TURIXIN [Concomitant]
     Active Substance: MUPIROCIN CALCIUM
     Dosage: UNK

REACTIONS (23)
  - Rales [Unknown]
  - Somnolence [Unknown]
  - Anaemia macrocytic [Unknown]
  - Staphylococcal infection [Recovered/Resolved]
  - Haemoptysis [Unknown]
  - Fatigue [Unknown]
  - Infection [Unknown]
  - Glomerulonephritis membranous [Recovering/Resolving]
  - Acute kidney injury [Recovered/Resolved]
  - Renal injury [Unknown]
  - Tubulointerstitial nephritis [Recovering/Resolving]
  - Gastritis [Unknown]
  - Tubulointerstitial nephritis [Unknown]
  - Cholelithiasis [Unknown]
  - Pneumonia [Unknown]
  - General physical health deterioration [Unknown]
  - Haemodialysis [Unknown]
  - Eosinophilic pneumonia [Unknown]
  - Acute kidney injury [Not Recovered/Not Resolved]
  - Azotaemia [Unknown]
  - Diarrhoea [Recovered/Resolved]
  - Microalbuminuria [Unknown]
  - Dialysis [Unknown]

NARRATIVE: CASE EVENT DATE: 201702
